FAERS Safety Report 13270551 (Version 1)
Quarter: 2017Q1

REPORT INFORMATION
  Report Type: Spontaneous
  Country: JP (occurrence: JP)
  Receive Date: 20170224
  Receipt Date: 20170224
  Transmission Date: 20170428
  Serious: Yes (Other)
  Sender: FDA-Public Use
  Company Number: JP-BAUSCH-BL-2017-004548

PATIENT
  Age: 24 Month
  Sex: Female
  Weight: 12.6 kg

DRUGS (3)
  1. THIAMYLAL [Suspect]
     Active Substance: THIAMYLAL
     Route: 065
  2. ATROPINE. [Suspect]
     Active Substance: ATROPINE
     Indication: SEDATION
     Route: 065
  3. THIAMYLAL [Suspect]
     Active Substance: THIAMYLAL
     Indication: SEDATION
     Route: 065

REACTIONS (2)
  - Condition aggravated [Unknown]
  - Opsoclonus myoclonus [Unknown]
